FAERS Safety Report 7376847-9 (Version None)
Quarter: 2011Q1

REPORT INFORMATION
  Report Type: 
  Country: None (occurrence: None)
  Receive Date: 20110325
  Receipt Date: 20110321
  Transmission Date: 20110831
  Serious: Yes (Other)
  Sender: FDA-Public Use
  Company Number: US-RB-019235-10

PATIENT
  Age: 43 Year
  Sex: Female

DRUGS (2)
  1. SUBOXONE [Suspect]
     Indication: PRODUCT USED FOR UNKNOWN INDICATION
     Dosage: DOSING INFORMATION UNKNOWN
     Route: 065
  2. SUBOXONE [Suspect]
     Indication: PRODUCT USED FOR UNKNOWN INDICATION
     Dosage: SUBOXONE SUBLINGUAL FILM; DOSING INFORMATION UNKNOWN
     Route: 065

REACTIONS (16)
  - BLOOD PRESSURE INCREASED [None]
  - GASTROINTESTINAL DISORDER POSTOPERATIVE [None]
  - SOMNOLENCE [None]
  - BRONCHITIS [None]
  - HALLUCINATION [None]
  - CRYING [None]
  - RENAL DISORDER [None]
  - GAIT DISTURBANCE [None]
  - MENOPAUSE [None]
  - HEADACHE [None]
  - OEDEMA PERIPHERAL [None]
  - INFLUENZA [None]
  - DECREASED APPETITE [None]
  - DEPRESSION [None]
  - INSOMNIA [None]
  - CONSTIPATION [None]
